FAERS Safety Report 5296525-X (Version None)
Quarter: 2007Q2

REPORT INFORMATION
  Report Type: 
  Country: None (occurrence: None)
  Receive Date: 20070413
  Receipt Date: 20070411
  Transmission Date: 20071010
  Serious: Yes (Other)
  Sender: FDA-Public Use
  Company Number: IT-BRISTOL-MYERS SQUIBB COMPANY-13746441

PATIENT
  Sex: Female

DRUGS (1)
  1. KARVEA [Suspect]

REACTIONS (1)
  - GASTRIC ULCER [None]
